FAERS Safety Report 7203598-3 (Version None)
Quarter: 2010Q4

REPORT INFORMATION
  Report Type: 
  Country: None (occurrence: None)
  Receive Date: 20101230
  Receipt Date: 20101221
  Transmission Date: 20110411
  Serious: Yes (Death)
  Sender: FDA-Public Use
  Company Number: US-ENDO PHARMACEUTICALS INC.-SPLN20100151

PATIENT
  Age: 9 Year
  Sex: Female

DRUGS (1)
  1. SUPPRELIN LA [Suspect]
     Route: 058

REACTIONS (1)
  - DEATH [None]
